FAERS Safety Report 25671520 (Version 1)
Quarter: 2025Q3

REPORT INFORMATION
  Report Type: Spontaneous
  Country: US (occurrence: US)
  Receive Date: 20250812
  Receipt Date: 20250812
  Transmission Date: 20251020
  Serious: Yes (Other)
  Sender: INTRA-CELLULAR THERAPIES
  Company Number: US-INTRA-CELLULAR THERAPIES, INC.-2025ICT01463

PATIENT
  Age: 41 Year
  Sex: Female

DRUGS (1)
  1. CAPLYTA [Suspect]
     Active Substance: LUMATEPERONE
     Indication: Bipolar disorder

REACTIONS (7)
  - Bipolar I disorder [Unknown]
  - Hypophagia [Unknown]
  - Mania [Unknown]
  - Mood altered [Unknown]
  - Irritability [Unknown]
  - Insomnia [Unknown]
  - Tachyphrenia [Unknown]
